FAERS Safety Report 24103586 (Version 1)
Quarter: 2024Q3

REPORT INFORMATION
  Report Type: Spontaneous
  Country: MY (occurrence: MY)
  Receive Date: 20240717
  Receipt Date: 20240717
  Transmission Date: 20241017
  Serious: Yes (Other)
  Sender: ASTELLAS
  Company Number: MY-ROCHE-10000013373

PATIENT
  Age: 46 Year
  Sex: Male

DRUGS (1)
  1. TARCEVA [Suspect]
     Active Substance: ERLOTINIB HYDROCHLORIDE
     Indication: Penile cancer
     Route: 048

REACTIONS (6)
  - Dermatitis acneiform [Recovering/Resolving]
  - Skin lesion [Recovering/Resolving]
  - Dry skin [Not Recovered/Not Resolved]
  - Epistaxis [Recovered/Resolved]
  - Haematuria [Recovered/Resolved]
  - Diarrhoea [Recovered/Resolved]
